FAERS Safety Report 9286604 (Version 1)
Quarter: 2013Q2

REPORT INFORMATION
  Report Type: Spontaneous
  Country: US (occurrence: US)
  Receive Date: 20130513
  Receipt Date: 20130513
  Transmission Date: 20140414
  Serious: Yes (Death, Hospitalization)
  Sender: FDA-Public Use
  Company Number: PHHY2013US047089

PATIENT
  Age: 68 Year
  Sex: Male

DRUGS (14)
  1. FUROSEMIDE [Suspect]
     Indication: FLUID OVERLOAD
     Dosage: 40-80 MG, BID
     Route: 042
  2. FUROSEMIDE [Suspect]
     Dosage: 80 MG, BID
     Route: 042
  3. AMPICILLIN/SULBACT [Concomitant]
  4. GENTAMICIN [Concomitant]
  5. ASPIRIN [Concomitant]
  6. HEPARIN [Concomitant]
     Route: 042
  7. POTASSIUM CHLORIDE [Concomitant]
     Dosage: 40 MEQ, BID
  8. LISINOPRIL [Concomitant]
     Dosage: 20 MG DAILY
  9. METOPROLOL TARTRATE [Concomitant]
     Dosage: 150 MG, BID
  10. NITROGLYCERIN [Concomitant]
     Route: 062
  11. SIMVASTATIN [Concomitant]
  12. MORPHINE [Concomitant]
  13. OMEPRAZOLE [Concomitant]
  14. TAMSULOSIN [Concomitant]

REACTIONS (9)
  - Pneumonia [Fatal]
  - Atrial fibrillation [Unknown]
  - Hypokalaemia [Unknown]
  - Alkalosis [Unknown]
  - Hyperaldosteronism [Unknown]
  - Metabolic alkalosis [Recovering/Resolving]
  - Pulmonary oedema [Unknown]
  - Rales [Unknown]
  - Fluid overload [Unknown]
